FAERS Safety Report 10045238 (Version 1)
Quarter: 2014Q1

REPORT INFORMATION
  Report Type: Spontaneous
  Country: FR (occurrence: FR)
  Receive Date: 20140328
  Receipt Date: 20140328
  Transmission Date: 20141002
  Serious: Yes (Hospitalization)
  Sender: FDA-Public Use
  Company Number: FR-ASTRAZENECA-2014SE20308

PATIENT
  Age: 29295 Day
  Sex: Male

DRUGS (6)
  1. INEXIUM [Suspect]
     Route: 048
     Dates: start: 2013
  2. METHOTREXATE (TEVA) [Interacting]
     Dosage: 1 G / 10 ML (80 MG ONCE A WEEK)
     Route: 042
     Dates: start: 20130829, end: 20130905
  3. METHOTREXATE (TEVA) [Interacting]
     Route: 042
  4. CARDENSIEL [Concomitant]
     Route: 048
  5. SIMVASTATINE [Concomitant]
     Route: 048
  6. ATACAND [Concomitant]
     Route: 048

REACTIONS (3)
  - Drug interaction [Unknown]
  - Pancytopenia [Recovered/Resolved]
  - Rash [Recovered/Resolved]
